FAERS Safety Report 9668407 (Version 1)
Quarter: 2013Q4

REPORT INFORMATION
  Report Type: Spontaneous
  Country: CA (occurrence: CA)
  Receive Date: 20131104
  Receipt Date: 20131104
  Transmission Date: 20140711
  Serious: Yes (Other)
  Sender: FDA-Public Use
  Company Number: CA-AMGEN-CANSP2013076654

PATIENT
  Age: 69 Year
  Sex: Female

DRUGS (5)
  1. PROLIA [Suspect]
     Indication: PRODUCT USED FOR UNKNOWN INDICATION
     Route: 065
  2. CRESTOR [Concomitant]
  3. LIPITOR [Concomitant]
  4. MULTIVITAMIN                       /07504101/ [Concomitant]
  5. CALCIUM [Concomitant]

REACTIONS (4)
  - Dental necrosis [Unknown]
  - Nerve injury [Unknown]
  - Dry skin [Unknown]
  - Pruritus [Unknown]
